FAERS Safety Report 9122977 (Version 1)
Quarter: 2013Q1

REPORT INFORMATION
  Report Type: Spontaneous
  Country: US (occurrence: US)
  Receive Date: 20130227
  Receipt Date: 20130227
  Transmission Date: 20140127
  Serious: No
  Sender: FDA-Public Use
  Company Number: US-GLAXOSMITHKLINE-A1005698A

PATIENT
  Age: 28 Year
  Sex: Female

DRUGS (1)
  1. VALTREX [Suspect]
     Indication: RASH
     Dosage: 500MG PER DAY
     Route: 048
     Dates: start: 201111

REACTIONS (2)
  - Rash [Not Recovered/Not Resolved]
  - Product quality issue [Unknown]
